FAERS Safety Report 4313388-7 (Version None)
Quarter: 2004Q1

REPORT INFORMATION
  Report Type: 
  Country: None (occurrence: None)
  Receive Date: 20040304
  Receipt Date: 20040218
  Transmission Date: 20041129
  Serious: Yes (Death)
  Sender: FDA-Public Use
  Company Number: 2004-DE-00805GD

PATIENT
  Age: 1 Month
  Sex: Female

DRUGS (5)
  1. CYCLOPHOSPHAMIDE [Suspect]
     Indication: STEM CELL TRANSPLANT
     Dosage: 50 MG/KG ONCE DAILY (NR), IV
     Route: 042
  2. BUSULPHAN(BUSULFAN) [Suspect]
     Indication: STEM CELL TRANSPLANT
     Dosage: 5 MG/KG IN DIVIDED DOSES
  3. ATG (ANTILYMPHOCYTE IMMUNOGLOBULIN (HORSE)) [Suspect]
     Indication: STEM CELL TRANSPLANT
  4. THIOTEPA [Suspect]
     Indication: STEM CELL TRANSPLANT
  5. STEROIDS [Concomitant]

REACTIONS (9)
  - AORTIC STENOSIS [None]
  - CHEST X-RAY ABNORMAL [None]
  - IDIOSYNCRATIC DRUG REACTION [None]
  - POST PROCEDURAL COMPLICATION [None]
  - PULMONARY HYPERTENSION [None]
  - PULMONARY VENO-OCCLUSIVE DISEASE [None]
  - UPPER GASTROINTESTINAL HAEMORRHAGE [None]
  - VENOOCCLUSIVE LIVER DISEASE [None]
  - VENTRICULAR HYPERTROPHY [None]
